FAERS Safety Report 14308224 (Version 1)
Quarter: 2017Q4

REPORT INFORMATION
  Report Type: Spontaneous
  Country: US (occurrence: US)
  Receive Date: 20171220
  Receipt Date: 20171220
  Transmission Date: 20180321
  Serious: Yes (Life-Threatening, Hospitalization, Other)
  Sender: FDA-Public Use
  Company Number: US-BRISTOL-MYERS SQUIBB COMPANY-BMS-2017-112624

PATIENT
  Age: 74 Year
  Sex: Male
  Weight: 107.3 kg

DRUGS (2)
  1. COUMADINE [Suspect]
     Active Substance: WARFARIN SODIUM
     Indication: ATRIAL FIBRILLATION
     Dosage: UNK
     Route: 048
     Dates: start: 20060712, end: 20121017
  2. PLAVIX [Concomitant]
     Active Substance: CLOPIDOGREL BISULFATE
     Indication: PRODUCT USED FOR UNKNOWN INDICATION
     Dosage: UNK
     Route: 065
     Dates: start: 20060628, end: 20121017

REACTIONS (4)
  - Acute kidney injury [Recovered/Resolved]
  - Acute respiratory failure [Recovered/Resolved]
  - Cholelithiasis [Recovered/Resolved]
  - Peritoneal haemorrhage [Recovered/Resolved]

NARRATIVE: CASE EVENT DATE: 20120917
